FAERS Safety Report 10590403 (Version 1)
Quarter: 2014Q4

REPORT INFORMATION
  Report Type: Spontaneous
  Country: IT (occurrence: IT)
  Receive Date: 20141118
  Receipt Date: 20141118
  Transmission Date: 20150529
  Serious: Yes (Death, Other)
  Sender: FDA-Public Use
  Company Number: IT-ACTAVIS-2014-24480

PATIENT
  Age: 50 Year
  Sex: Female

DRUGS (3)
  1. EPIRUBICIN (UNKNOWN) [Suspect]
     Active Substance: EPIRUBICIN
     Indication: INVASIVE DUCTAL BREAST CARCINOMA
     Dosage: 360 MG, UNKNOWN, 4 CYCLES
     Route: 065
  2. 5 FLUORO URACIL [Concomitant]
     Active Substance: FLUOROURACIL
     Indication: INVASIVE DUCTAL BREAST CARCINOMA
     Dosage: 3520 MG, UNKNOWN, 4 CYCLES
     Route: 065
  3. CYCLOPHOSPHAMIDE. [Concomitant]
     Active Substance: CYCLOPHOSPHAMIDE
     Indication: INVASIVE DUCTAL BREAST CARCINOMA
     Dosage: 3520 MG, UNKNOWN, 4 CYCLES
     Route: 065

REACTIONS (1)
  - Acute leukaemia [Fatal]
